FAERS Safety Report 11285427 (Version 1)
Quarter: 2015Q3

REPORT INFORMATION
  Report Type: Spontaneous
  Country: US (occurrence: US)
  Receive Date: 20150720
  Receipt Date: 20150720
  Transmission Date: 20151125
  Serious: Yes (Death, Hospitalization, Other)
  Sender: FDA-Public Use
  Company Number: PHHY2015US084546

PATIENT
  Age: 66 Year
  Sex: Male

DRUGS (5)
  1. 5-FLUOROURACIL [Suspect]
     Active Substance: FLUOROURACIL
     Indication: PANCREATIC CARCINOMA METASTATIC
     Route: 065
  2. IRINOTECAN [Suspect]
     Active Substance: IRINOTECAN
     Indication: PANCREATIC CARCINOMA METASTATIC
     Route: 065
  3. NEUPOGEN [Suspect]
     Active Substance: FILGRASTIM
     Indication: PANCREATIC CARCINOMA METASTATIC
     Route: 065
  4. LEUCOVORIN CALCIUM. [Suspect]
     Active Substance: LEUCOVORIN CALCIUM
     Indication: PANCREATIC CARCINOMA METASTATIC
     Route: 065
  5. OXALIPLATIN. [Suspect]
     Active Substance: OXALIPLATIN
     Indication: PANCREATIC CARCINOMA METASTATIC
     Route: 065

REACTIONS (15)
  - Aphasia [Unknown]
  - Seizure [Unknown]
  - Confusional state [Unknown]
  - Streptococcal infection [Unknown]
  - Hemianopia homonymous [Unknown]
  - Vasogenic cerebral oedema [Unknown]
  - Splenic abscess [Unknown]
  - Neutropenia [Recovered/Resolved]
  - Brain abscess [Unknown]
  - Gastrointestinal toxicity [Unknown]
  - Neurological decompensation [Unknown]
  - Condition aggravated [Unknown]
  - Death [Fatal]
  - Pyrexia [Unknown]
  - Liver abscess [Unknown]
